FAERS Safety Report 7183305-3 (Version None)
Quarter: 2010Q4

REPORT INFORMATION
  Report Type: 
  Country: None (occurrence: None)
  Receive Date: 20101222
  Receipt Date: 20100806
  Transmission Date: 20110411
  Serious: Yes (Other)
  Sender: FDA-Public Use
  Company Number: A0875258A

PATIENT
  Age: 37 Year

DRUGS (1)
  1. FLONASE [Suspect]
     Indication: NASAL CONGESTION
     Route: 065

REACTIONS (1)
  - CATARACT [None]
